FAERS Safety Report 16438890 (Version 16)
Quarter: 2022Q2

REPORT INFORMATION
  Report Type: Report from Study
  Country: JP (occurrence: JP)
  Receive Date: 20190617
  Receipt Date: 20220405
  Transmission Date: 20220721
  Serious: Yes (Death, Hospitalization, Other)
  Sender: FDA-Public Use
  Company Number: JP-ASTELLAS-2019JP011741

PATIENT
  Age: 88 Year
  Sex: Male
  Weight: 54 kg

DRUGS (24)
  1. ENZALUTAMIDE [Suspect]
     Active Substance: ENZALUTAMIDE
     Indication: Prostate cancer
     Route: 048
     Dates: start: 20190412, end: 20190514
  2. ENZALUTAMIDE [Suspect]
     Active Substance: ENZALUTAMIDE
     Route: 048
     Dates: start: 20190522, end: 20190606
  3. ENZALUTAMIDE [Suspect]
     Active Substance: ENZALUTAMIDE
     Route: 048
     Dates: start: 20190710
  4. TRIAZOLAM [Concomitant]
     Active Substance: TRIAZOLAM
     Indication: Insomnia
     Route: 048
     Dates: start: 1977
  5. HALCION [Concomitant]
     Active Substance: TRIAZOLAM
     Indication: Insomnia
     Route: 048
     Dates: start: 1977
  6. SENNOSIDES [Concomitant]
     Active Substance: SENNOSIDES
     Indication: Constipation
     Route: 048
     Dates: start: 1997
  7. SENNOSIDES A AND B [Concomitant]
     Active Substance: SENNOSIDES A AND B
     Indication: Constipation
     Route: 048
     Dates: start: 1997
  8. Uralyt [Concomitant]
     Indication: Dysuria
     Route: 048
     Dates: start: 1997
  9. Uralyt [Concomitant]
     Indication: Hyperuricaemia
  10. PRAVASTATIN SODIUM [Concomitant]
     Active Substance: PRAVASTATIN SODIUM
     Indication: Dyslipidaemia
     Route: 048
     Dates: start: 1997
  11. LOSARTAN POTASSIUM [Concomitant]
     Active Substance: LOSARTAN POTASSIUM
     Indication: Hypertension
     Route: 048
     Dates: start: 2016
  12. AMLODIPINE BESYLATE [Concomitant]
     Active Substance: AMLODIPINE BESYLATE
     Indication: Hypertension
     Route: 048
     Dates: start: 2016
  13. ATENOLOL [Concomitant]
     Active Substance: ATENOLOL
     Indication: Hypertension
     Route: 048
     Dates: start: 2016
  14. SILODOSIN [Concomitant]
     Active Substance: SILODOSIN
     Indication: Hypertonic bladder
     Route: 048
     Dates: start: 2017
  15. SILODOSIN [Concomitant]
     Active Substance: SILODOSIN
     Indication: Dysuria
  16. TADALAFIL [Concomitant]
     Active Substance: TADALAFIL
     Indication: Hypertonic bladder
     Route: 048
     Dates: start: 2017
  17. TADALAFIL [Concomitant]
     Active Substance: TADALAFIL
     Indication: Dysuria
  18. TAMSULOSIN HYDROCHLORIDE [Concomitant]
     Active Substance: TAMSULOSIN HYDROCHLORIDE
     Indication: Dysuria
     Route: 048
     Dates: start: 2017
  19. CALCIUM CARBONATE\CHOLECALCIFEROL\MAGNESIUM CARBONATE [Concomitant]
     Active Substance: CALCIUM CARBONATE\CHOLECALCIFEROL\MAGNESIUM CARBONATE
     Indication: Prophylaxis
     Route: 048
     Dates: start: 20170613
  20. DENOSUMAB [Concomitant]
     Active Substance: DENOSUMAB
     Indication: Prophylaxis
     Dosage: UNK UNK, ONCE EVERY 3 MONTHS
     Route: 058
     Dates: start: 20170613
  21. HERBALS [Concomitant]
     Active Substance: HERBALS
     Indication: Malaise
     Route: 048
     Dates: start: 20170728
  22. REBAMIPIDE [Concomitant]
     Active Substance: REBAMIPIDE
     Indication: Gastritis prophylaxis
     Route: 048
     Dates: start: 20170728
  23. REBAMIPIDE [Concomitant]
     Active Substance: REBAMIPIDE
     Indication: Decreased appetite
  24. MIRABEGRON [Concomitant]
     Active Substance: MIRABEGRON
     Indication: Dysuria
     Route: 048
     Dates: start: 20171215

REACTIONS (4)
  - Drowning [Fatal]
  - Hepatic function abnormal [Recovering/Resolving]
  - Colon cancer [Recovering/Resolving]
  - Delirium [Recovered/Resolved]

NARRATIVE: CASE EVENT DATE: 20190614
